FAERS Safety Report 25226206 (Version 1)
Quarter: 2025Q2

REPORT INFORMATION
  Report Type: Spontaneous
  Country: FR (occurrence: FR)
  Receive Date: 20250422
  Receipt Date: 20250422
  Transmission Date: 20250716
  Serious: Yes (Death, Other)
  Sender: SANOFI AVENTIS
  Company Number: FR-SA-2025SA116300

PATIENT
  Age: 81 Year
  Sex: Male
  Weight: 85 kg

DRUGS (3)
  1. LOVENOX [Suspect]
     Active Substance: ENOXAPARIN SODIUM
     Indication: Thrombosis prophylaxis
     Dosage: 4000 IU, QD
     Route: 058
     Dates: start: 20250308, end: 20250309
  2. KARDEGIC [Suspect]
     Active Substance: ASPIRIN DL-LYSINE
     Indication: Myocardial ischaemia
     Dosage: 1 DF, QD
     Route: 048
     Dates: start: 2017
  3. CALCIPARINE [Suspect]
     Active Substance: HEPARIN CALCIUM
     Indication: Thrombosis prophylaxis
     Dosage: 5000 IU, Q12H
     Route: 058
     Dates: start: 20250310, end: 20250315

REACTIONS (2)
  - Subdural haematoma [Fatal]
  - Coma [Unknown]

NARRATIVE: CASE EVENT DATE: 20250315
